FAERS Safety Report 23342012 (Version 1)
Quarter: 2023Q4

REPORT INFORMATION
  Report Type: Other
  Country: GB (occurrence: GB)
  Receive Date: 20231227
  Receipt Date: 20231227
  Transmission Date: 20240110
  Serious: Yes (Other)
  Sender: FDA-Public Use
  Company Number: GB-BoehringerIngelheim-2023-BI-279559

PATIENT
  Age: 64 Year
  Sex: Female

DRUGS (1)
  1. ALTEPLASE [Suspect]
     Active Substance: ALTEPLASE
     Indication: Retinal haemorrhage
     Dosage: DOSE 25 MG IN 0.2 ML TPA
     Route: 050

REACTIONS (3)
  - Rhegmatogenous retinal detachment [Unknown]
  - Off label use [Unknown]
  - Off label use [Unknown]
